FAERS Safety Report 11542642 (Version 1)
Quarter: 2015Q3

REPORT INFORMATION
  Report Type: Spontaneous
  Country: US (occurrence: None)
  Receive Date: 20150923
  Receipt Date: 20150923
  Transmission Date: 20151125
  Serious: Yes (Hospitalization, Other)
  Sender: FDA-Public Use
  Company Number: US-MDT-ADR-2015-01835

PATIENT
  Age: 55 Year
  Sex: Female

DRUGS (2)
  1. COMPOUNDED BACLOFEN INTRATHECAL 4000 MCG/ML [Suspect]
     Active Substance: BACLOFEN
     Dosage: 100 MCG/DAY
  2. BUPIVACAINE 8000 MCG/ML [Suspect]
     Active Substance: BUPIVACAINE
     Dosage: 2100 MCG/DAY

REACTIONS (2)
  - Overdose [None]
  - Pyrexia [None]
